FAERS Safety Report 4413523-6 (Version None)
Quarter: 2004Q3

REPORT INFORMATION
  Report Type: 
  Country: None (occurrence: None)
  Receive Date: 20040802
  Receipt Date: 20040727
  Transmission Date: 20050211
  Serious: Yes (Death, Other)
  Sender: FDA-Public Use
  Company Number: US-MERCK-0407USA02343

PATIENT
  Age: 16 Year
  Sex: Female
  Weight: 48 kg

DRUGS (3)
  1. CYCLOPHOSPHAMIDE [Concomitant]
     Route: 065
  2. COSMEGEN [Suspect]
     Indication: RHABDOMYOSARCOMA
     Route: 065
  3. VINCRISTINE SULFATE [Concomitant]
     Route: 065

REACTIONS (7)
  - BRADYCARDIA [None]
  - CARDIAC ARREST [None]
  - DISSEMINATED INTRAVASCULAR COAGULATION [None]
  - INFECTION [None]
  - MUCOSAL INFLAMMATION [None]
  - MULTI-ORGAN FAILURE [None]
  - OBSTRUCTIVE AIRWAYS DISORDER [None]
